FAERS Safety Report 16272418 (Version 2)
Quarter: 2019Q4

REPORT INFORMATION
  Report Type: Spontaneous
  Country: US (occurrence: US)
  Receive Date: 20190503
  Receipt Date: 20191105
  Transmission Date: 20200122
  Serious: Yes (Other)
  Sender: FDA-Public Use
  Company Number: US-ASTRAZENECA-2019SE11487

PATIENT
  Age: 43 Year
  Sex: Male

DRUGS (48)
  1. PRILOSEC [Suspect]
     Active Substance: OMEPRAZOLE MAGNESIUM
     Indication: GASTROOESOPHAGEAL REFLUX DISEASE
     Route: 048
  2. LISINOPRIL. [Concomitant]
     Active Substance: LISINOPRIL
  3. ALPRAZOLAM. [Concomitant]
     Active Substance: ALPRAZOLAM
  4. VANCOMYCIN [Concomitant]
     Active Substance: VANCOMYCIN
  5. CARVEDILOL. [Concomitant]
     Active Substance: CARVEDILOL
  6. MAGENSIUM [Concomitant]
  7. ULORIC [Concomitant]
     Active Substance: FEBUXOSTAT
  8. PRILOSEC [Suspect]
     Active Substance: OMEPRAZOLE MAGNESIUM
     Indication: GASTROOESOPHAGEAL REFLUX DISEASE
     Route: 048
     Dates: start: 2007, end: 2015
  9. ALLOPURINOL. [Concomitant]
     Active Substance: ALLOPURINOL
  10. FUROSEMIDE. [Concomitant]
     Active Substance: FUROSEMIDE
  11. ASPIRIN. [Concomitant]
     Active Substance: ASPIRIN
  12. TAGAMET HB [Concomitant]
     Active Substance: CIMETIDINE
  13. LISINOPRIL. [Concomitant]
     Active Substance: LISINOPRIL
  14. HYDROCODONE BITARTRATE AND ACETAMINOPHEN [Concomitant]
     Active Substance: ACETAMINOPHEN\HYDROCODONE BITARTRATE
  15. FUROSEMIDE. [Concomitant]
     Active Substance: FUROSEMIDE
  16. VESICARE [Concomitant]
     Active Substance: SOLIFENACIN SUCCINATE
  17. SIMVASTATIN. [Concomitant]
     Active Substance: SIMVASTATIN
  18. TIZANIDINE. [Concomitant]
     Active Substance: TIZANIDINE
  19. NITROGLYCERIN. [Concomitant]
     Active Substance: NITROGLYCERIN
  20. FUROSEMIDE. [Concomitant]
     Active Substance: FUROSEMIDE
  21. PRILOSEC [Suspect]
     Active Substance: OMEPRAZOLE MAGNESIUM
     Indication: GASTROOESOPHAGEAL REFLUX DISEASE
     Route: 065
     Dates: start: 2007, end: 2015
  22. PREDNISONE. [Concomitant]
     Active Substance: PREDNISONE
  23. TORSEMIDE. [Concomitant]
     Active Substance: TORSEMIDE
  24. ZANTAC [Concomitant]
     Active Substance: RANITIDINE HYDROCHLORIDE
  25. GENTAMICIN. [Concomitant]
     Active Substance: GENTAMICIN
  26. PROMETHAZINE [Concomitant]
     Active Substance: PROMETHAZINE HYDROCHLORIDE
  27. PRILOSEC [Suspect]
     Active Substance: OMEPRAZOLE MAGNESIUM
     Indication: GASTROOESOPHAGEAL REFLUX DISEASE
     Dosage: GENERIC
     Route: 065
  28. OXYCODONE ACETAMINOPHEN [Concomitant]
     Active Substance: ACETAMINOPHEN\OXYCODONE HYDROCHLORIDE
  29. PREDNISOLONE. [Concomitant]
     Active Substance: PREDNISOLONE
  30. CENTRUM [Concomitant]
     Active Substance: VITAMINS
  31. CITALOPRAM [Concomitant]
     Active Substance: CITALOPRAM HYDROBROMIDE
  32. ZOLPIDEM [Concomitant]
     Active Substance: ZOLPIDEM TARTRATE
  33. MECLIZINE [Concomitant]
     Active Substance: MECLIZINE HYDROCHLORIDE
  34. CIPROFLOXACIN. [Concomitant]
     Active Substance: CIPROFLOXACIN
  35. INDOMETHACIN. [Concomitant]
     Active Substance: INDOMETHACIN
  36. PROMETHAZINE [Concomitant]
     Active Substance: PROMETHAZINE HYDROCHLORIDE
  37. LANTUS [Concomitant]
     Active Substance: INSULIN GLARGINE
  38. ROLAIDS [Concomitant]
     Active Substance: CALCIUM CARBONATE\MAGNESIUM HYDROXIDE
  39. ACETAMINOPHEN. [Concomitant]
     Active Substance: ACETAMINOPHEN
  40. DIGOXIN. [Concomitant]
     Active Substance: DIGOXIN
  41. PROMETHAZINE [Concomitant]
     Active Substance: PROMETHAZINE HYDROCHLORIDE
  42. LISINOPRIL. [Concomitant]
     Active Substance: LISINOPRIL
  43. TRAMADOL. [Concomitant]
     Active Substance: TRAMADOL
  44. LORTAB [Concomitant]
     Active Substance: ACETAMINOPHEN\HYDROCODONE BITARTRATE
  45. PEPCID COMPLETE [Concomitant]
     Active Substance: CALCIUM CARBONATE\FAMOTIDINE\MAGNESIUM HYDROXIDE
  46. LUNESTA [Concomitant]
     Active Substance: ESZOPICLONE
  47. CALCIUM ACETATE. [Concomitant]
     Active Substance: CALCIUM ACETATE
  48. CARVEDILOL. [Concomitant]
     Active Substance: CARVEDILOL

REACTIONS (6)
  - Renal failure [Unknown]
  - End stage renal disease [Not Recovered/Not Resolved]
  - Rebound acid hypersecretion [Unknown]
  - Chronic kidney disease [Not Recovered/Not Resolved]
  - Acute kidney injury [Unknown]
  - Nephrogenic anaemia [Unknown]

NARRATIVE: CASE EVENT DATE: 2015
